FAERS Safety Report 12507611 (Version 2)
Quarter: 2016Q3

REPORT INFORMATION
  Report Type: Report from Study
  Country: PA (occurrence: PA)
  Receive Date: 20160629
  Receipt Date: 20160712
  Transmission Date: 20161109
  Serious: Yes (Hospitalization, Other)
  Sender: FDA-Public Use
  Company Number: PHHY2016PA087959

PATIENT
  Sex: Female
  Weight: 73.47 kg

DRUGS (1)
  1. TASIGNA [Suspect]
     Active Substance: NILOTINIB
     Indication: CHRONIC MYELOID LEUKAEMIA
     Dosage: 400 MG, BID
     Route: 048
     Dates: start: 2009

REACTIONS (6)
  - Renal disorder [Unknown]
  - Nephrolithiasis [Recovered/Resolved]
  - Calculus urinary [Recovered/Resolved]
  - Hypertension [Unknown]
  - Renal artery stenosis [Recovering/Resolving]
  - Blood creatinine increased [Unknown]
